FAERS Safety Report 21599985 (Version 1)
Quarter: 2022Q4

REPORT INFORMATION
  Report Type: Spontaneous
  Country: US (occurrence: US)
  Receive Date: 20221116
  Receipt Date: 20221116
  Transmission Date: 20230113
  Serious: No
  Sender: FDA-Public Use
  Company Number: US-Ipsen Biopharmaceuticals, Inc.-2022-30687

PATIENT
  Age: 62 Year
  Sex: Male
  Weight: 129 kg

DRUGS (1)
  1. SOMATULINE DEPOT [Suspect]
     Active Substance: LANREOTIDE ACETATE
     Indication: Acromegaly
     Dosage: ABOUT FIVE YEARS AGO
     Route: 065

REACTIONS (1)
  - Drug ineffective [Unknown]
